FAERS Safety Report 5031683-3 (Version None)
Quarter: 2006Q2

REPORT INFORMATION
  Report Type: 
  Country: None (occurrence: None)
  Receive Date: 20060616
  Receipt Date: 20060609
  Transmission Date: 20061013
  Serious: Yes (Hospitalization, Other)
  Sender: FDA-Public Use
  Company Number: US-2006-003368

PATIENT
  Age: 54 Year
  Sex: Female
  Weight: 80.7 kg

DRUGS (5)
  1. BETASERON [Suspect]
     Indication: RELAPSING-REMITTING MULTIPLE SCLEROSIS
     Dosage: 8 MIU, EVERY 2D, SUBCUTANEOUS
     Route: 058
     Dates: start: 19980101
  2. PRILOSEC [Concomitant]
  3. PROZAC [Concomitant]
  4. CARBAMAZEPINE [Concomitant]
  5. OXYBUTYNIN CHLORIDE [Concomitant]

REACTIONS (8)
  - BLOOD CHOLESTEROL INCREASED [None]
  - CARDIAC FAILURE CONGESTIVE [None]
  - CONDITION AGGRAVATED [None]
  - DEHYDRATION [None]
  - ELECTROCARDIOGRAM ABNORMAL [None]
  - INFLUENZA [None]
  - INJECTION SITE RASH [None]
  - MULTIPLE SCLEROSIS [None]
